FAERS Safety Report 4436149-7 (Version None)
Quarter: 2004Q3

REPORT INFORMATION
  Report Type: 
  Country: None (occurrence: None)
  Receive Date: 20040830
  Receipt Date: 20040820
  Transmission Date: 20050211
  Serious: Yes (Other)
  Sender: FDA-Public Use
  Company Number: US-JNJFOC-20040602952

PATIENT
  Sex: Male
  Weight: 60.33 kg

DRUGS (1)
  1. REMICADE [Suspect]
     Indication: CROHN'S DISEASE
     Dosage: 18-24 MONTHS  LAST INFUSION LESS THAN 8 WEEKS AGO
     Route: 042

REACTIONS (4)
  - BIOPSY SITE UNSPECIFIED ABNORMAL [None]
  - LUNG NEOPLASM MALIGNANT [None]
  - NEOPLASM MALIGNANT [None]
  - NEUROENDOCRINE CARCINOMA [None]
